FAERS Safety Report 5069324-1 (Version None)
Quarter: 2006Q3

REPORT INFORMATION
  Report Type: 
  Country: None (occurrence: None)
  Receive Date: 20060802
  Receipt Date: 20060802
  Transmission Date: 20061208
  Serious: Yes (Hospitalization, Disabling)
  Sender: FDA-Public Use
  Company Number: None

PATIENT
  Age: 10 Year
  Sex: Male
  Weight: 28.123 kg

DRUGS (2)
  1. SEROQUEL [Suspect]
     Indication: AFFECTIVE DISORDER
     Dosage: 100 MG PER DAY  DAILY  ORAL
     Route: 048
     Dates: start: 20060414, end: 20060507
  2. GEODON [Suspect]
     Indication: SUICIDAL IDEATION
     Dosage: 60 MG DAILY ORAL
     Route: 048
     Dates: start: 20060507, end: 20060628

REACTIONS (1)
  - DYSKINESIA [None]
